FAERS Safety Report 5876765-9 (Version None)
Quarter: 2008Q3

REPORT INFORMATION
  Report Type: 
  Country: None (occurrence: None)
  Receive Date: 20080910
  Receipt Date: 20080902
  Transmission Date: 20090109
  Serious: Yes (Hospitalization)
  Sender: FDA-Public Use
  Company Number: DE-BRISTOL-MYERS SQUIBB COMPANY-14323422

PATIENT
  Age: 33 Year
  Sex: Female

DRUGS (1)
  1. ABATACEPT [Suspect]
     Indication: ANKYLOSING SPONDYLITIS
     Route: 042

REACTIONS (1)
  - PARAESTHESIA [None]
